FAERS Safety Report 14839984 (Version 1)
Quarter: 2018Q2

REPORT INFORMATION
  Report Type: Other
  Country: GB (occurrence: GB)
  Receive Date: 20180503
  Receipt Date: 20180503
  Transmission Date: 20180711
  Serious: No
  Sender: FDA-Public Use
  Company Number: GB-LUPIN PHARMACEUTICALS INC.-2018-00530

PATIENT
  Sex: Female

DRUGS (1)
  1. MEMANTINE HYDROCHLORIDE. [Suspect]
     Active Substance: MEMANTINE HYDROCHLORIDE
     Indication: NYSTAGMUS
     Dosage: 10 MG, UNK
     Route: 048

REACTIONS (2)
  - Drug prescribing error [Unknown]
  - No adverse event [Unknown]
